FAERS Safety Report 17958031 (Version 1)
Quarter: 2020Q2

REPORT INFORMATION
  Report Type: Spontaneous
  Country: US (occurrence: US)
  Receive Date: 20200629
  Receipt Date: 20200629
  Transmission Date: 20200714
  Serious: Yes (Hospitalization)
  Sender: FDA-Public Use
  Company Number: US-AMNEAL PHARMACEUTICALS-2020-AMRX-01804

PATIENT
  Age: 1 Year
  Sex: Female

DRUGS (1)
  1. VIGABATRIN. [Suspect]
     Active Substance: VIGABATRIN
     Indication: INFANTILE SPASMS
     Dosage: 1000 MILLIGRAM, BID
     Route: 048

REACTIONS (2)
  - Respiratory distress [Unknown]
  - Product dose omission [Unknown]

NARRATIVE: CASE EVENT DATE: 20200615
